FAERS Safety Report 9357164 (Version 1)
Quarter: 2013Q2

REPORT INFORMATION
  Report Type: Spontaneous
  Country: US (occurrence: US)
  Receive Date: 20130620
  Receipt Date: 20130620
  Transmission Date: 20140414
  Serious: No
  Sender: FDA-Public Use
  Company Number: US-BIOGENIDEC-2013BI052422

PATIENT
  Age: 61 Year
  Sex: Male

DRUGS (1)
  1. AVONEX [Suspect]
     Indication: MULTIPLE SCLEROSIS
     Route: 030
     Dates: start: 20130207

REACTIONS (5)
  - Influenza [Recovered/Resolved]
  - Drug administered at inappropriate site [Recovered/Resolved]
  - Muscle spasms [Recovered/Resolved]
  - Insomnia [Recovered/Resolved]
  - Influenza like illness [Recovered/Resolved]
